FAERS Safety Report 19694529 (Version 1)
Quarter: 2021Q3

REPORT INFORMATION
  Report Type: Report from Study
  Country: BR (occurrence: BR)
  Receive Date: 20210812
  Receipt Date: 20210812
  Transmission Date: 20211014
  Serious: Yes (Other)
  Sender: FDA-Public Use
  Company Number: NVSC2021BR179230

PATIENT
  Sex: Female

DRUGS (1)
  1. EXELON [Suspect]
     Active Substance: RIVASTIGMINE TARTRATE
     Indication: PRODUCT USED FOR UNKNOWN INDICATION
     Dosage: 4.6 MG (PATCH 5 (CM2) OR CONTAINS BASE LOADED WITH 9 MG RIVASTIGMINE / DAILY)
     Route: 065

REACTIONS (3)
  - Hypertension [Unknown]
  - Diabetes mellitus [Unknown]
  - Illness [Unknown]
